FAERS Safety Report 8890656 (Version 2)
Quarter: 2012Q4

REPORT INFORMATION
  Report Type: Report from Study
  Country: CA (occurrence: CA)
  Receive Date: 20121107
  Receipt Date: 20121119
  Transmission Date: 20130627
  Serious: No
  Sender: FDA-Public Use
  Company Number: CA-JNJFOC-20121101982

PATIENT
  Sex: Male
  Weight: 120 kg

DRUGS (2)
  1. REMICADE [Suspect]
     Indication: CROHN^S DISEASE
     Route: 042
     Dates: start: 200510
  2. NEXIUM [Concomitant]
     Dosage: dose 40 (unit unspecified) as needed
     Route: 065

REACTIONS (2)
  - Candidiasis [Not Recovered/Not Resolved]
  - Rash [Not Recovered/Not Resolved]
